FAERS Safety Report 18280063 (Version 13)
Quarter: 2021Q3

REPORT INFORMATION
  Report Type: Report from Study
  Country: US (occurrence: US)
  Receive Date: 20200917
  Receipt Date: 20210730
  Transmission Date: 20211014
  Serious: Yes (Other)
  Sender: FDA-Public Use
  Company Number: NVSC2020US254559

PATIENT
  Sex: Female
  Weight: 57.6 kg

DRUGS (9)
  1. TREPROSTINIL. [Suspect]
     Active Substance: TREPROSTINIL
     Indication: PULMONARY ARTERIAL HYPERTENSION
     Dosage: (10 NG/KG/MIN)
     Route: 042
     Dates: start: 20200911
  2. TREPROSTINIL. [Suspect]
     Active Substance: TREPROSTINIL
     Dosage: (30 NG/KG/MIN)
     Route: 065
  3. TREPROSTINIL. [Suspect]
     Active Substance: TREPROSTINIL
     Dosage: (75 NG/KG/MIN)
     Route: 042
  4. TREPROSTINIL. [Suspect]
     Active Substance: TREPROSTINIL
     Dosage: (51 NG/KG/MIN)TREPROSTINIL 2.5MG/ML,(
     Route: 042
  5. TREPROSTINIL. [Suspect]
     Active Substance: TREPROSTINIL
     Dosage: (20 NG/KG/MIN)
     Route: 042
  6. TREPROSTINIL. [Suspect]
     Active Substance: TREPROSTINIL
     Dosage: (39 NG/KG/MIN), CONT
     Route: 042
  7. TREPROSTINIL. [Suspect]
     Active Substance: TREPROSTINIL
     Dosage: (50 NG/KG/MIN)TREPROSTINIL 2.5MG/ML,(
     Route: 042
  8. SILDENAFIL CITRATE. [Concomitant]
     Active Substance: SILDENAFIL CITRATE
     Indication: PRODUCT USED FOR UNKNOWN INDICATION
     Dosage: UNK
     Route: 065
  9. TREPROSTINIL. [Suspect]
     Active Substance: TREPROSTINIL
     Dosage: (56 NG/KG/MIN), CONT
     Route: 042

REACTIONS (13)
  - Fatigue [Unknown]
  - Herpes zoster [Unknown]
  - Pain in jaw [Unknown]
  - Cellulitis [Unknown]
  - Back pain [Unknown]
  - Scleroderma [Unknown]
  - Feeling abnormal [Unknown]
  - Pain in extremity [Unknown]
  - Muscle spasms [Unknown]
  - Dyspepsia [Recovered/Resolved]
  - Myalgia [Unknown]
  - Incision site discharge [Unknown]
  - Headache [Unknown]
